FAERS Safety Report 5225494-3 (Version None)
Quarter: 2007Q1

REPORT INFORMATION
  Report Type: 
  Country: None (occurrence: None)
  Receive Date: 20061201
  Receipt Date: 20060824
  Transmission Date: 20070707
  Serious: No
  Sender: FDA-Public Use
  Company Number: US200608005332

PATIENT
  Age: 45 Year
  Sex: Female

DRUGS (3)
  1. CYMBALTA [Suspect]
     Indication: DEPRESSION
     Dosage: SEE IMAGE
     Dates: start: 20060731
  2. CYMBALTA [Suspect]
     Indication: DEPRESSION
     Dosage: SEE IMAGE
     Dates: start: 20060807
  3. PAXIL [Concomitant]

REACTIONS (4)
  - ANTISOCIAL BEHAVIOUR [None]
  - ANXIETY [None]
  - DRUG INEFFECTIVE [None]
  - THOUGHT BLOCKING [None]
